FAERS Safety Report 5823323-8 (Version None)
Quarter: 2008Q3

REPORT INFORMATION
  Report Type: 
  Country: None (occurrence: None)
  Receive Date: 20080725
  Receipt Date: 20070618
  Transmission Date: 20090109
  Serious: No
  Sender: FDA-Public Use
  Company Number: US-AMGEN-KDL224084

PATIENT
  Sex: Male
  Weight: 82 kg

DRUGS (8)
  1. PROCRIT [Suspect]
     Indication: RENAL FAILURE CHRONIC
     Dates: start: 20060315, end: 20070427
  2. CALCITRIOL [Concomitant]
  3. LOVASTATIN [Concomitant]
  4. DILTIAZEM HCL [Concomitant]
  5. ALLOPURINOL [Concomitant]
  6. PHOSLO [Concomitant]
  7. LASIX [Concomitant]
  8. LUPRON [Concomitant]

REACTIONS (2)
  - EYE SWELLING [None]
  - LIP SWELLING [None]
